FAERS Safety Report 21211569 (Version 1)
Quarter: 2022Q3

REPORT INFORMATION
  Report Type: Spontaneous
  Country: US (occurrence: None)
  Receive Date: 20220812
  Receipt Date: 20220812
  Transmission Date: 20221027
  Serious: Yes (Life-Threatening, Hospitalization)
  Sender: FDA-Public Use
  Company Number: None

PATIENT
  Age: 55 Year
  Sex: Male
  Weight: 131 kg

DRUGS (3)
  1. APIXABAN [Suspect]
     Active Substance: APIXABAN
     Indication: Atrial fibrillation
     Dosage: 5 MG BID PO? 75 MG EVERY DAY PO?DATE OF USE: 02/24/20210 THRU 02/04/202?
     Route: 048
     Dates: start: 20210224
  2. APIXABAN [Suspect]
     Active Substance: APIXABAN
     Indication: Anticoagulant therapy
     Dosage: FREQUENCY : DAILY;?
     Route: 048
     Dates: start: 20210224
  3. APIXABAN [Suspect]
     Active Substance: APIXABAN
     Dosage: 75 MG EVERY DAY PO

REACTIONS (2)
  - Gastric haemorrhage [None]
  - Haemoglobin decreased [None]

NARRATIVE: CASE EVENT DATE: 20220130
